FAERS Safety Report 6882546-X (Version None)
Quarter: 2010Q3

REPORT INFORMATION
  Report Type: 
  Country: None (occurrence: None)
  Receive Date: 20100729
  Receipt Date: 20100722
  Transmission Date: 20110219
  Serious: Yes (Other)
  Sender: FDA-Public Use
  Company Number: CA-BRISTOL-MYERS SQUIBB COMPANY-15206956

PATIENT

DRUGS (1)
  1. TAXOL [Suspect]

REACTIONS (1)
  - MACULAR OEDEMA [None]
